FAERS Safety Report 23433209 (Version 2)
Quarter: 2024Q1

REPORT INFORMATION
  Report Type: Spontaneous
  Country: US (occurrence: US)
  Receive Date: 20240123
  Receipt Date: 20240208
  Transmission Date: 20240410
  Serious: Yes (Hospitalization, Other)
  Sender: FDA-Public Use
  Company Number: US-PFIZER INC-202400015739

PATIENT
  Age: 66 Year
  Sex: Female

DRUGS (11)
  1. PAXLOVID [Suspect]
     Active Substance: NIRMATRELVIR\RITONAVIR
     Indication: COVID-19 treatment
     Dosage: [NIRMATRELVIR 300 MG]/[RITONAVIR 100 MG]; 2X/DAY
     Dates: start: 20221217, end: 20221222
  2. PAXLOVID [Suspect]
     Active Substance: NIRMATRELVIR\RITONAVIR
     Dosage: UNK
     Dates: start: 202304
  3. PREDNISONE [Suspect]
     Active Substance: PREDNISONE
     Indication: Angioedema
     Dosage: 10 MG, 3 TIMES A DAY-ONE WEEK
  4. PREDNISONE [Suspect]
     Active Substance: PREDNISONE
     Indication: Swollen tongue
  5. PREDNISONE [Suspect]
     Active Substance: PREDNISONE
     Indication: Swelling face
  6. ATIVAN [Concomitant]
     Active Substance: LORAZEPAM
     Dosage: 0.5MG OF ATIVAN, TWICE A DAY
  7. ATIVAN [Concomitant]
     Active Substance: LORAZEPAM
     Dosage: 10 MG, DAILY
  8. ATIVAN [Concomitant]
     Active Substance: LORAZEPAM
     Dosage: 0.05 MG, 2X/DAY
  9. PRILOSEC [Concomitant]
     Active Substance: OMEPRAZOLE MAGNESIUM
     Dosage: UNK
     Dates: start: 202301, end: 202306
  10. LIPITOR [Concomitant]
     Active Substance: ATORVASTATIN CALCIUM
     Dosage: UNK
     Dates: start: 202206, end: 202312
  11. CLARITROX [Concomitant]
     Dosage: A DAY = 10 MG

REACTIONS (16)
  - Anaphylactic shock [Not Recovered/Not Resolved]
  - Angioedema [Not Recovered/Not Resolved]
  - Abdominal distension [Not Recovered/Not Resolved]
  - Peripheral swelling [Not Recovered/Not Resolved]
  - Chronic kidney disease [Recovered/Resolved]
  - Constipation [Not Recovered/Not Resolved]
  - Blood glucose increased [Not Recovered/Not Resolved]
  - Insomnia [Not Recovered/Not Resolved]
  - Panic reaction [Not Recovered/Not Resolved]
  - Sleep apnoea syndrome [Not Recovered/Not Resolved]
  - Asthenia [Not Recovered/Not Resolved]
  - Blood cholesterol increased [Not Recovered/Not Resolved]
  - Illness [Not Recovered/Not Resolved]
  - Fatigue [Not Recovered/Not Resolved]
  - Weight increased [Not Recovered/Not Resolved]
  - Infection [Recovered/Resolved]

NARRATIVE: CASE EVENT DATE: 20230401
